FAERS Safety Report 8276802-0 (Version None)
Quarter: 2012Q2

REPORT INFORMATION
  Report Type: 
  Country: None (occurrence: None)
  Receive Date: 20120412
  Receipt Date: 20120410
  Transmission Date: 20120825
  Serious: Yes (Disabling)
  Sender: FDA-Public Use
  Company Number: US-PFIZER INC-2012089707

PATIENT
  Sex: Male
  Weight: 115.65 kg

DRUGS (2)
  1. NORVASC [Suspect]
     Indication: HYPERTENSION
     Dosage: 10 MG, DAILY
     Route: 048
     Dates: start: 20110101
  2. VIAGRA [Suspect]
     Indication: SEXUAL DYSFUNCTION
     Dosage: 100 MG, DAILY
     Route: 048

REACTIONS (3)
  - BACK DISORDER [None]
  - BLOOD CHOLESTEROL INCREASED [None]
  - HEPATOMEGALY [None]
